FAERS Safety Report 6700057-9 (Version None)
Quarter: 2010Q2

REPORT INFORMATION
  Report Type: 
  Country: None (occurrence: None)
  Receive Date: 20100428
  Receipt Date: 20100427
  Transmission Date: 20101027
  Serious: Yes (Other)
  Sender: FDA-Public Use
  Company Number: IN-BRISTOL-MYERS SQUIBB COMPANY-15078694

PATIENT
  Age: 46 Year
  Sex: Female

DRUGS (1)
  1. BARACLUDE [Suspect]
     Indication: HEPATITIS B
     Dosage: STOPPED IN EARLY 2009
     Route: 048
     Dates: start: 20060101

REACTIONS (1)
  - HEPATIC NEOPLASM MALIGNANT [None]
